FAERS Safety Report 24885103 (Version 5)
Quarter: 2025Q2

REPORT INFORMATION
  Report Type: Spontaneous
  Country: US (occurrence: US)
  Receive Date: 20250124
  Receipt Date: 20250609
  Transmission Date: 20250716
  Serious: No
  Sender: PFIZER
  Company Number: US-PFIZER INC-202500015079

PATIENT
  Age: 14 Year
  Sex: Female
  Weight: 34.02 kg

DRUGS (7)
  1. GENOTROPIN [Suspect]
     Active Substance: SOMATROPIN
     Indication: Growth hormone deficiency
     Dosage: 1.8 MG, DAILY (SHOT EVERY DAY IN THE ARMS OR BUTTOCKS)
     Dates: start: 202310
  2. CETIRIZINE HCL [Concomitant]
     Active Substance: CETIRIZINE HYDROCHLORIDE
     Indication: Hypersensitivity
  3. JORNAY PM EXTENDED-RELEASE [Concomitant]
     Active Substance: METHYLPHENIDATE HYDROCHLORIDE
     Indication: Attention deficit hyperactivity disorder
     Dosage: 100 MG, 1X/DAY (EVERY NIGHT, BEEN ON FOR 4 YEARS OR 5 YEARS)
  4. ESTRADIOL [Concomitant]
     Active Substance: ESTRADIOL
     Indication: Delayed puberty
     Dosage: 0.025 MG, 2X/WEEK (ONE PATCH SHE CUTS IN HALF, BEEN ON FOR A COUPLE OF YEARS)
  5. PSYLLIUM HUSK [Concomitant]
     Active Substance: PSYLLIUM HUSK
  6. MELATONIN [Concomitant]
     Active Substance: MELATONIN
     Dosage: 5 MG, 1X/DAY (EVERY NIGHT, BEEN TAKING FOR 2 YEARS)
  7. VITAMIN D NOS [Concomitant]
     Active Substance: CHOLECALCIFEROL\ERGOCALCIFEROL

REACTIONS (6)
  - Drug dose omission by device [Unknown]
  - Device use issue [Unknown]
  - Device information output issue [Unknown]
  - Device delivery system issue [Unknown]
  - Expired device used [Unknown]
  - Device mechanical issue [Unknown]

NARRATIVE: CASE EVENT DATE: 20250119
